FAERS Safety Report 5315239-0 (Version None)
Quarter: 2007Q2

REPORT INFORMATION
  Report Type: 
  Country: None (occurrence: None)
  Receive Date: 20070502
  Receipt Date: 20070423
  Transmission Date: 20071010
  Serious: Yes (Hospitalization, Other)
  Sender: FDA-Public Use
  Company Number: IE-PFIZER INC-2007029574

PATIENT
  Age: 64 Year
  Sex: Female

DRUGS (6)
  1. CARDURA [Suspect]
     Indication: HYPERTENSION
     Route: 048
  2. ASPIRIN [Concomitant]
     Route: 048
  3. DIOVAN [Concomitant]
     Dosage: TEXT:UNKNOWN
     Route: 048
     Dates: start: 20040101
  4. FRUSEMIDE [Concomitant]
     Route: 048
     Dates: start: 20070301
  5. ZESTRIL [Concomitant]
     Route: 048
     Dates: start: 20060301
  6. ATENOLOL [Concomitant]
     Route: 048
     Dates: start: 20070301

REACTIONS (3)
  - ABDOMINAL PAIN [None]
  - DIARRHOEA [None]
  - HYPERTENSION [None]
